FAERS Safety Report 7653310-9 (Version None)
Quarter: 2011Q3

REPORT INFORMATION
  Report Type: 
  Country: None (occurrence: None)
  Receive Date: 20110803
  Receipt Date: 20110725
  Transmission Date: 20111222
  Serious: Yes (Other)
  Sender: FDA-Public Use
  Company Number: CA-AMGEN-CANSP2011037557

PATIENT
  Age: 72 Year
  Sex: Female

DRUGS (3)
  1. ENBREL [Suspect]
     Indication: PRODUCT USED FOR UNKNOWN INDICATION
     Dosage: UNK
  2. REMICADE [Concomitant]
     Dosage: 300 MG, UNK
     Route: 042
  3. PREDNISONE [Concomitant]

REACTIONS (2)
  - LUNG INFECTION [None]
  - DYSPNOEA [None]
